FAERS Safety Report 6717409-3 (Version None)
Quarter: 2010Q2

REPORT INFORMATION
  Report Type: 
  Country: None (occurrence: None)
  Receive Date: 20100505
  Receipt Date: 20100429
  Transmission Date: 20101027
  Serious: Yes (Other)
  Sender: FDA-Public Use
  Company Number: 2010SP014226

PATIENT
  Sex: Female

DRUGS (1)
  1. NUVARING [Suspect]
     Indication: CONTRACEPTION
     Dates: start: 20100204, end: 20100205

REACTIONS (2)
  - CIRCULATORY COLLAPSE [None]
  - VERTIGO [None]
